FAERS Safety Report 21467267 (Version 1)
Quarter: 2022Q4

REPORT INFORMATION
  Report Type: Spontaneous
  Country: US (occurrence: None)
  Receive Date: 20221017
  Receipt Date: 20221017
  Transmission Date: 20230113
  Serious: Yes (Disabling, Other)
  Sender: FDA-Public Use
  Company Number: None

PATIENT
  Age: 86 Year
  Sex: Male
  Weight: 112.49 kg

DRUGS (1)
  1. KENALOG-40 [Suspect]
     Active Substance: TRIAMCINOLONE ACETONIDE

REACTIONS (10)
  - Depression [None]
  - Abdominal pain [None]
  - Tachycardia [None]
  - Arrhythmia [None]
  - Anxiety [None]
  - Insomnia [None]
  - Influenza [None]
  - Blood pressure increased [None]
  - Nausea [None]
  - Fatigue [None]

NARRATIVE: CASE EVENT DATE: 20220906
